FAERS Safety Report 15917996 (Version 4)
Quarter: 2019Q1

REPORT INFORMATION
  Report Type: Spontaneous
  Country: CN (occurrence: CN)
  Receive Date: 20190205
  Receipt Date: 20190228
  Transmission Date: 20190417
  Serious: Yes (Death, Hospitalization)
  Sender: FDA-Public Use
  Company Number: CN-ABBVIE-19S-035-2643165-00

PATIENT
  Age: 55 Year
  Sex: Female

DRUGS (6)
  1. LOSARTAN POTASSIUM. [Concomitant]
     Active Substance: LOSARTAN POTASSIUM
     Indication: PRODUCT USED FOR UNKNOWN INDICATION
     Route: 048
     Dates: end: 20190201
  2. EXVIERA [Suspect]
     Active Substance: DASABUVIR
     Indication: CHRONIC HEPATITIS C
     Route: 048
     Dates: start: 20190104, end: 20190201
  3. METHYLPREDNISOLONE. [Concomitant]
     Active Substance: METHYLPREDNISOLONE
     Indication: PRODUCT USED FOR UNKNOWN INDICATION
     Route: 048
     Dates: end: 20190201
  4. LANSOPRAZOLE ENTERIC-COATED TABLETS [Concomitant]
     Indication: PRODUCT USED FOR UNKNOWN INDICATION
     Route: 048
     Dates: end: 20190201
  5. VIEKIRAX [Suspect]
     Active Substance: OMBITASVIR\PARITAPREVIR\RITONAVIR
     Indication: CHRONIC HEPATITIS C
     Route: 048
     Dates: start: 20190104, end: 20190201
  6. PIPERAZINE FERULATE [Concomitant]
     Indication: PRODUCT USED FOR UNKNOWN INDICATION
     Dates: end: 20190201

REACTIONS (5)
  - Aspartate aminotransferase increased [Recovering/Resolving]
  - Respiratory failure [Fatal]
  - Alanine aminotransferase increased [Recovering/Resolving]
  - Pulmonary embolism [Fatal]
  - Lung infection [Fatal]

NARRATIVE: CASE EVENT DATE: 20190125
